FAERS Safety Report 19930643 (Version 3)
Quarter: 2022Q2

REPORT INFORMATION
  Report Type: Spontaneous
  Country: IT (occurrence: IT)
  Receive Date: 20211008
  Receipt Date: 20220411
  Transmission Date: 20220720
  Serious: Yes (Other)
  Sender: FDA-Public Use
  Company Number: IT-MINISAL02-791978

PATIENT
  Age: 27 Year
  Sex: Male
  Weight: 75 kg

DRUGS (6)
  1. OLANZAPINE [Suspect]
     Active Substance: OLANZAPINE
     Indication: Restlessness
     Dosage: 10 MILLIGRAM, ONCE A DAY
     Route: 048
     Dates: start: 20210915, end: 20210917
  2. OLANZAPINE [Suspect]
     Active Substance: OLANZAPINE
     Indication: Agitation
  3. QUETIAPINE [Suspect]
     Active Substance: QUETIAPINE
     Indication: Agitation
     Dosage: 50 MILLIGRAM, ONCE A DAY
     Route: 048
     Dates: start: 20210830
  4. CEFTOBIPROLE MEDOCARIL [Suspect]
     Active Substance: CEFTOBIPROLE MEDOCARIL
     Indication: Agitation
     Dosage: 500 MILLIGRAM, ONCE A DAY
     Route: 065
     Dates: start: 20210909, end: 20210915
  5. CEFTOBIPROLE MEDOCARIL [Suspect]
     Active Substance: CEFTOBIPROLE MEDOCARIL
     Indication: Restlessness
  6. AUGMENTIN [Suspect]
     Active Substance: AMOXICILLIN\CLAVULANATE POTASSIUM
     Indication: Agitation
     Dosage: UNK
     Route: 065
     Dates: start: 20210902, end: 20210909

REACTIONS (3)
  - Erythema multiforme [Recovering/Resolving]
  - Stevens-Johnson syndrome [Recovering/Resolving]
  - Rash maculo-papular [Recovering/Resolving]

NARRATIVE: CASE EVENT DATE: 20210916
